FAERS Safety Report 21270347 (Version 1)
Quarter: 2022Q3

REPORT INFORMATION
  Report Type: Spontaneous
  Country: US (occurrence: US)
  Receive Date: 20220830
  Receipt Date: 20220830
  Transmission Date: 20221027
  Serious: No
  Sender: FDA-Public Use
  Company Number: US-BAYER-2022A121149

PATIENT
  Age: 35 Year
  Sex: Female

DRUGS (2)
  1. MIRENA [Suspect]
     Active Substance: LEVONORGESTREL
     Indication: Heavy menstrual bleeding
     Dosage: 20?G/DAY
     Route: 015
     Dates: start: 20220823
  2. MIRENA [Suspect]
     Active Substance: LEVONORGESTREL
     Indication: Endometriosis

REACTIONS (1)
  - Medical device site discomfort [Not Recovered/Not Resolved]

NARRATIVE: CASE EVENT DATE: 20220823
